FAERS Safety Report 12337444 (Version 1)
Quarter: 2016Q2

REPORT INFORMATION
  Report Type: Spontaneous
  Country: US (occurrence: None)
  Receive Date: 20160504
  Receipt Date: 20160504
  Transmission Date: 20160815
  Serious: No
  Sender: FDA-Public Use
  Company Number: None

PATIENT
  Age: 55 Year
  Sex: Male

DRUGS (10)
  1. TACROLIMUS CAP 1MG [Suspect]
     Active Substance: TACROLIMUS
     Indication: HEART TRANSPLANT
     Route: 048
  2. PANTOPRAZOLE [Concomitant]
     Active Substance: PANTOPRAZOLE SODIUM
  3. MYCOPHENOLATE MOF TAB 500MG [Suspect]
     Active Substance: MYCOPHENOLATE MOFETIL
     Indication: HEART TRANSPLANT
     Route: 048
  4. DELTASONE [Concomitant]
     Active Substance: PREDNISONE
  5. PRAVACHOL [Concomitant]
     Active Substance: PRAVASTATIN SODIUM
  6. HUMALOG [Concomitant]
     Active Substance: INSULIN LISPRO
  7. DAPSONE. [Concomitant]
     Active Substance: DAPSONE
  8. NYSTATIN. [Concomitant]
     Active Substance: NYSTATIN
  9. NORVASC [Concomitant]
     Active Substance: AMLODIPINE BESYLATE
  10. VALCYTE [Concomitant]
     Active Substance: VALGANCICLOVIR HYDROCHLORIDE

REACTIONS (2)
  - Tremor [None]
  - Blood glucose increased [None]

NARRATIVE: CASE EVENT DATE: 20160321
